FAERS Safety Report 4293204-2 (Version None)
Quarter: 2004Q1

REPORT INFORMATION
  Report Type: 
  Country: None (occurrence: None)
  Receive Date: 20040210
  Receipt Date: 20040130
  Transmission Date: 20041129
  Serious: Yes (Death, Disabling)
  Sender: FDA-Public Use
  Company Number: 163-20785-03010398

PATIENT
  Age: 77 Year
  Sex: Male

DRUGS (10)
  1. THALOMID [Suspect]
     Indication: MULTIPLE MYELOMA
     Dosage: 100 MG, QD, ORAL
     Route: 048
     Dates: start: 20021009, end: 20030101
  2. THALOMID [Suspect]
     Indication: MULTIPLE MYELOMA
     Dosage: 100 MG, QD, ORAL
     Route: 048
     Dates: start: 20030724, end: 20030101
  3. DEXAMETHASONE [Suspect]
  4. AMIODARONE HCL [Suspect]
  5. LASIX [Concomitant]
  6. PROPRANOLOL [Concomitant]
  7. ZANTAC [Concomitant]
  8. COUMADIN [Concomitant]
  9. LANOXIN [Concomitant]
  10. SYNTHROID [Concomitant]

REACTIONS (16)
  - ASTHENIA [None]
  - BLOOD IMMUNOGLOBULIN G INCREASED [None]
  - DIFFICULTY IN WALKING [None]
  - FAILURE TO THRIVE [None]
  - GAIT DISTURBANCE [None]
  - JOINT SWELLING [None]
  - MALIGNANT NEOPLASM PROGRESSION [None]
  - MOOD ALTERED [None]
  - MULTIPLE MYELOMA [None]
  - MUSCLE ATROPHY [None]
  - MYOPATHY STEROID [None]
  - NEUROPATHY [None]
  - OEDEMA PERIPHERAL [None]
  - PLATELET COUNT DECREASED [None]
  - PNEUMONIA [None]
  - RESPIRATORY FAILURE [None]
